FAERS Safety Report 4522822-9 (Version None)
Quarter: 2004Q4

REPORT INFORMATION
  Report Type: 
  Country: None (occurrence: None)
  Receive Date: 20041209
  Receipt Date: 20041005
  Transmission Date: 20050328
  Serious: Yes (Hospitalization)
  Sender: FDA-Public Use
  Company Number: AU-MERCK-0410AUS00064

PATIENT
  Age: 87 Year
  Sex: Female

DRUGS (4)
  1. VIOXX [Suspect]
     Indication: RHEUMATOID ARTHRITIS
     Route: 048
     Dates: start: 20020101, end: 20041001
  2. ZOCOR [Concomitant]
     Route: 065
  3. ASPIRIN AND DIPYRIDAMOLE [Concomitant]
     Route: 065
     Dates: end: 20040901
  4. LANSOPRAZOLE [Concomitant]
     Route: 065

REACTIONS (3)
  - MYOCARDIAL INFARCTION [None]
  - PAIN IN EXTREMITY [None]
  - SYNCOPE [None]
